FAERS Safety Report 10211652 (Version 1)
Quarter: 2014Q2

REPORT INFORMATION
  Report Type: Spontaneous
  Country: US (occurrence: US)
  Receive Date: 20140602
  Receipt Date: 20140602
  Transmission Date: 20141212
  Serious: No
  Sender: FDA-Public Use
  Company Number: US-GLAXOSMITHKLINE-A1070487A

PATIENT
  Age: 26 Year
  Sex: Female

DRUGS (2)
  1. FABIOR [Suspect]
     Indication: ACNE
     Route: 061
     Dates: start: 20140401
  2. NO CONCURRENT MEDICATION [Concomitant]

REACTIONS (3)
  - Application site rash [Recovering/Resolving]
  - Pruritus [Unknown]
  - Application site pain [Unknown]
